FAERS Safety Report 7626573-3 (Version None)
Quarter: 2011Q3

REPORT INFORMATION
  Report Type: 
  Country: None (occurrence: None)
  Receive Date: 20110721
  Receipt Date: 20110703
  Transmission Date: 20111222
  Serious: Yes (Hospitalization)
  Sender: FDA-Public Use
  Company Number: IL-GLAXOSMITHKLINE-B0728019A

PATIENT
  Sex: Female

DRUGS (4)
  1. CYMBALTA [Concomitant]
     Indication: PAIN
     Dates: start: 20110522
  2. ESCITALOPRAM [Concomitant]
     Indication: ANXIETY
     Dates: start: 20080101
  3. LAPATINIB [Suspect]
     Indication: BREAST CANCER METASTATIC
     Route: 048
     Dates: start: 20090303
  4. PACLITAXEL [Suspect]
     Indication: BREAST CANCER METASTATIC
     Dosage: 80MGM2 WEEKLY
     Route: 042
     Dates: start: 20090303, end: 20090804

REACTIONS (2)
  - HERPES ZOSTER [None]
  - CELLULITIS [None]
